FAERS Safety Report 11276562 (Version 1)
Quarter: 2015Q3

REPORT INFORMATION
  Report Type: Spontaneous
  Country: CH (occurrence: CH)
  Receive Date: 20150716
  Receipt Date: 20150716
  Transmission Date: 20151125
  Serious: Yes (Other)
  Sender: FDA-Public Use
  Company Number: PHHY2015CH084024

PATIENT
  Sex: Male

DRUGS (2)
  1. RIMACTAN SANDOZ [Suspect]
     Active Substance: RIFAMPIN
     Indication: INFECTION
     Dosage: UNK
     Route: 042
     Dates: start: 2012, end: 2012
  2. RIMACTAN SANDOZ [Suspect]
     Active Substance: RIFAMPIN
     Route: 048

REACTIONS (2)
  - Tooth loss [Unknown]
  - Gingival disorder [Unknown]

NARRATIVE: CASE EVENT DATE: 2012
